FAERS Safety Report 9883360 (Version 2)
Quarter: 2014Q1

REPORT INFORMATION
  Report Type: Spontaneous
  Country: US (occurrence: US)
  Receive Date: 20140210
  Receipt Date: 20140210
  Transmission Date: 20141002
  Serious: Yes (Other)
  Sender: FDA-Public Use
  Company Number: US-BEH-2013037347

PATIENT
  Age: 22 Year
  Sex: Female

DRUGS (1)
  1. PRIVIGEN [Suspect]
     Route: 042
     Dates: start: 20140111

REACTIONS (6)
  - Device related infection [Recovered/Resolved]
  - Malaise [Recovered/Resolved]
  - Headache [Recovered/Resolved]
  - Vomiting [Recovered/Resolved]
  - Inappropriate schedule of drug administration [Unknown]
  - Incorrect drug administration rate [Recovered/Resolved]
